FAERS Safety Report 4556090-9 (Version None)
Quarter: 2005Q1

REPORT INFORMATION
  Report Type: 
  Country: None (occurrence: None)
  Receive Date: 20050114
  Receipt Date: 20050105
  Transmission Date: 20050727
  Serious: Yes (Hospitalization)
  Sender: FDA-Public Use
  Company Number: 2005004741

PATIENT
  Age: 35 Year
  Sex: Male
  Weight: 84 kg

DRUGS (9)
  1. VFEND [Suspect]
     Indication: RESPIRATORY MONILIASIS
     Dosage: 400 MG (1 IN 1 D),
     Dates: start: 20040923, end: 20041021
  2. VFEND [Suspect]
     Indication: SKIN CANDIDA
     Dosage: 400 MG (1 IN 1 D),
     Dates: start: 20040923, end: 20041021
  3. CYTARABINE [Concomitant]
  4. FOLIC ACID [Concomitant]
  5. ETOPOSIDE [Concomitant]
  6. MITOXANTRONE [Concomitant]
  7. CASPOFUNGIN (CASPOFUNGIN) [Concomitant]
  8. BACTRIM [Concomitant]
  9. VALACYCLOVIR HCL [Concomitant]

REACTIONS (2)
  - LICHEN PLANUS [None]
  - TOXIC SKIN ERUPTION [None]
